FAERS Safety Report 6568340-8 (Version None)
Quarter: 2010Q1

REPORT INFORMATION
  Report Type: 
  Country: None (occurrence: None)
  Receive Date: 20100128
  Receipt Date: 20100121
  Transmission Date: 20100710
  Serious: Yes (Death)
  Sender: FDA-Public Use
  Company Number: TOR 2010-0013

PATIENT
  Age: 53 Year
  Sex: Female

DRUGS (4)
  1. TOREMIFENE (TOREMIFENE) [Suspect]
     Indication: BREAST CANCER
     Dosage: 60 MG/DAY
  2. FLUOROURACIL [Concomitant]
  3. ADRIAMICINE [Concomitant]
  4. CYCLOPOSPHAMIDE [Concomitant]

REACTIONS (5)
  - BREAST CANCER METASTATIC [None]
  - METASTASES TO BONE [None]
  - METASTASES TO CENTRAL NERVOUS SYSTEM [None]
  - METASTASES TO UTERUS [None]
  - UTERINE POLYP [None]
